FAERS Safety Report 15273403 (Version 1)
Quarter: 2018Q3

REPORT INFORMATION
  Report Type: Spontaneous
  Country: US (occurrence: US)
  Receive Date: 20180813
  Receipt Date: 20180813
  Transmission Date: 20181010
  Serious: Yes (Hospitalization)
  Sender: FDA-Public Use
  Company Number: US-GALDERMA-US18028316

PATIENT
  Age: 74 Year
  Sex: Male
  Weight: 79.9 kg

DRUGS (13)
  1. ECOTRIN [Concomitant]
     Active Substance: ASPIRIN
  2. ZOCOR [Concomitant]
     Active Substance: SIMVASTATIN
  3. MYCOSTATIN [Concomitant]
     Active Substance: NYSTATIN
  4. COZAAR [Concomitant]
     Active Substance: LOSARTAN POTASSIUM
  5. MULTIVITAMINS W/MINERALS [Concomitant]
     Active Substance: MINERALS\VITAMINS
  6. FISH OIL W/VITAMIN E [Concomitant]
  7. CLEAR EYES [Concomitant]
     Active Substance: NAPHAZOLINE HYDROCHLORIDE
  8. CABOMETYX [Suspect]
     Active Substance: CABOZANTINIB S-MALATE
     Indication: RENAL CELL CARCINOMA STAGE IV
     Route: 048
  9. VESICARE [Concomitant]
     Active Substance: SOLIFENACIN SUCCINATE
  10. ZOFRAN [Concomitant]
     Active Substance: ONDANSETRON HYDROCHLORIDE
  11. DOXYCYCLINE. [Suspect]
     Active Substance: DOXYCYCLINE
     Indication: EPIDIDYMITIS
     Route: 048
     Dates: start: 201805, end: 201805
  12. NYSTOP [Concomitant]
     Active Substance: NYSTATIN
  13. VITAMIN B12 [Concomitant]
     Active Substance: CYANOCOBALAMIN

REACTIONS (13)
  - Asthenia [Unknown]
  - Blood glucose increased [Recovering/Resolving]
  - Vomiting [Recovered/Resolved]
  - Acute kidney injury [Recovering/Resolving]
  - Dehydration [Unknown]
  - Diarrhoea [Recovered/Resolved]
  - Diplopia [Recovering/Resolving]
  - Small intestinal obstruction [Unknown]
  - Faeces discoloured [Recovering/Resolving]
  - Dyspnoea [Unknown]
  - Confusional state [Recovering/Resolving]
  - Intentional product use issue [Recovered/Resolved]
  - Abdominal pain lower [Unknown]

NARRATIVE: CASE EVENT DATE: 201805
